FAERS Safety Report 6601597-3 (Version None)
Quarter: 2010Q1

REPORT INFORMATION
  Report Type: 
  Country: None (occurrence: None)
  Receive Date: 20100225
  Receipt Date: 20091216
  Transmission Date: 20100710
  Serious: No
  Sender: FDA-Public Use
  Company Number: US-KINGPHARMUSA00001-K200901574

PATIENT
  Age: 41 Year
  Sex: Male
  Weight: 79.365 kg

DRUGS (8)
  1. FLECTOR [Suspect]
     Indication: INTERVERTEBRAL DISC PROTRUSION
     Dosage: 1 PATCH, QD
     Route: 061
     Dates: start: 20091213, end: 20091215
  2. FLECTOR [Suspect]
     Indication: ARTHRITIS
  3. FLECTOR [Suspect]
     Indication: NECK PAIN
  4. LIPITOR [Concomitant]
     Indication: BLOOD CHOLESTEROL INCREASED
     Dosage: UNK
     Route: 048
  5. ZYRTEC [Concomitant]
     Indication: SEASONAL ALLERGY
     Dosage: UNK
     Route: 048
  6. ACETAMINOPHEN [Concomitant]
     Indication: INTERVERTEBRAL DISC PROTRUSION
     Dosage: UNK
     Route: 048
  7. ACETAMINOPHEN [Concomitant]
     Indication: ARTHRITIS
  8. ACETAMINOPHEN [Concomitant]
     Indication: NECK PAIN

REACTIONS (2)
  - ERYTHEMA [None]
  - PRURITUS [None]
